FAERS Safety Report 9682709 (Version 2)
Quarter: 2013Q4

REPORT INFORMATION
  Report Type: Spontaneous
  Country: JP (occurrence: JP)
  Receive Date: 20131112
  Receipt Date: 20131206
  Transmission Date: 20140711
  Serious: Yes (Other)
  Sender: FDA-Public Use
  Company Number: JP-BAYER-2013-134790

PATIENT
  Age: 45 Year
  Sex: Female
  Weight: 56 kg

DRUGS (13)
  1. YAZ [Suspect]
     Indication: DYSMENORRHOEA
     Dosage: UNK
     Route: 048
     Dates: start: 20120305, end: 20131103
  2. YAZ [Suspect]
     Indication: PREMENSTRUAL SYNDROME
  3. METLIGINE [Concomitant]
     Route: 048
  4. MYONAL [Concomitant]
     Route: 048
  5. METHYCOBAL [Concomitant]
     Route: 048
  6. MAGMITT [Concomitant]
     Route: 048
  7. REMERON [Concomitant]
     Route: 048
  8. MYSLEE [Concomitant]
     Route: 048
  9. ROZEREM [Concomitant]
     Route: 048
  10. DORAL [Concomitant]
     Route: 048
  11. RESLIN [Concomitant]
     Route: 048
  12. SEROQUEL [Concomitant]
     Route: 048
  13. CEPHADOL [Concomitant]
     Route: 048

REACTIONS (6)
  - Vaginal haemorrhage [None]
  - Menstruation irregular [None]
  - Dyspnoea [None]
  - Palpitations [None]
  - Dizziness [None]
  - Loss of consciousness [Recovering/Resolving]
